FAERS Safety Report 22071440 (Version 2)
Quarter: 2023Q1

REPORT INFORMATION
  Report Type: Spontaneous
  Country: IN (occurrence: IN)
  Receive Date: 20230307
  Receipt Date: 20230330
  Transmission Date: 20230418
  Serious: No
  Sender: FDA-Public Use
  Company Number: IN-PFIZER INC-202200106847

PATIENT
  Age: 71 Year
  Sex: Female
  Weight: 65.2 kg

DRUGS (2)
  1. PALBOCICLIB [Suspect]
     Active Substance: PALBOCICLIB
     Indication: Breast cancer metastatic
     Dosage: 125 MG, OD (ONCE A DAY) WITH FOOD - DAY 1 TO 21 (THEN 1 WEEK OFF)
     Route: 048
     Dates: start: 20211007
  2. LETROZOLE [Concomitant]
     Active Substance: LETROZOLE
     Dosage: 2.5 MG, ONCE A DAY

REACTIONS (15)
  - COVID-19 [Unknown]
  - Pyrexia [Unknown]
  - Haemoglobin decreased [Unknown]
  - Red blood cell count decreased [Unknown]
  - Mean cell volume increased [Unknown]
  - Monocyte percentage increased [Unknown]
  - Mean platelet volume decreased [Unknown]
  - Red cell distribution width increased [Unknown]
  - Blood urea increased [Unknown]
  - Haematocrit decreased [Unknown]
  - Mean cell haemoglobin increased [Unknown]
  - White blood cell count decreased [Unknown]
  - Heart rate increased [Unknown]
  - Neutrophil count decreased [Unknown]
  - Blood pressure increased [Unknown]

NARRATIVE: CASE EVENT DATE: 20220115
